FAERS Safety Report 9714534 (Version 3)
Quarter: 2013Q4

REPORT INFORMATION
  Report Type: Spontaneous
  Country: JP (occurrence: JP)
  Receive Date: 20131126
  Receipt Date: 20131217
  Transmission Date: 20140711
  Serious: Yes (Other)
  Sender: FDA-Public Use
  Company Number: JP-ASTRAZENECA-2013SE77905

PATIENT
  Age: 38 Year
  Sex: Female

DRUGS (5)
  1. SYMBICORT TURBUHALER [Suspect]
     Indication: ASTHMA
     Dosage: 2 DF, TWO TIMES A DAY
     Route: 055
     Dates: start: 20130318
  2. SYMBICORT TURBUHALER [Suspect]
     Indication: ASTHMA
     Dosage: 1 DF, DAILY
     Route: 055
     Dates: end: 20131008
  3. SYMBICORT TURBUHALER [Suspect]
     Indication: ASTHMA
     Dosage: 1 DF, DAILY
     Route: 055
     Dates: start: 20131018, end: 20131024
  4. LOCOID [Suspect]
     Dosage: DOSE UNKNOWN
     Route: 065
     Dates: end: 20131008
  5. RINDERON [Suspect]
     Indication: ALOPECIA
     Dosage: DOSE UNKNOWN
     Route: 062
     Dates: start: 20130909, end: 20131008

REACTIONS (7)
  - Adrenal insufficiency [Recovered/Resolved]
  - Alopecia [Recovered/Resolved]
  - Asthenia [Unknown]
  - Malaise [Unknown]
  - Cough [Unknown]
  - Pruritus [Unknown]
  - Therapy cessation [Unknown]
